FAERS Safety Report 8147609-X (Version None)
Quarter: 2012Q1

REPORT INFORMATION
  Report Type: 
  Country: None (occurrence: None)
  Receive Date: 20120218
  Receipt Date: 20110302
  Transmission Date: 20120608
  Serious: No
  Sender: FDA-Public Use
  Company Number: US-ALLERGAN-1012061US

PATIENT
  Age: 70 Year
  Sex: Female

DRUGS (5)
  1. BOTULINUM TOXIN TYPE A [Suspect]
     Indication: TORTICOLLIS
     Dosage: 200 UNITS, SINGLE Q 3 MOS
     Route: 030
     Dates: start: 20100713, end: 20100713
  2. PILOCARPINE [Concomitant]
     Indication: DRY MOUTH
  3. AMITRIPTYLINE HCL [Concomitant]
     Indication: PRODUCT USED FOR UNKNOWN INDICATION
  4. ELAVIL [Concomitant]
     Indication: PRODUCT USED FOR UNKNOWN INDICATION
  5. BIOTENE                            /00203502/ [Concomitant]
     Indication: DRY MOUTH

REACTIONS (3)
  - DENTAL CARIES [None]
  - DRY MOUTH [None]
  - ORAL DISORDER [None]
